FAERS Safety Report 10227046 (Version 2)
Quarter: 2014Q3

REPORT INFORMATION
  Report Type: Spontaneous
  Country: SE (occurrence: SE)
  Receive Date: 20140610
  Receipt Date: 20140710
  Transmission Date: 20150326
  Serious: Yes (Other)
  Sender: FDA-Public Use
  Company Number: SE-AMGEN INC.-SWESP2014042604

PATIENT
  Age: 54 Year
  Sex: Male

DRUGS (7)
  1. ENBREL [Suspect]
     Active Substance: ETANERCEPT
     Dosage: 50 MG, 2X/WEEK
     Route: 065
  2. ENBREL [Suspect]
     Active Substance: ETANERCEPT
     Indication: PSORIASIS
     Dosage: 25 MG, 2X/WEEK
     Route: 065
     Dates: start: 200401
  3. NEOTIGASON [Concomitant]
     Active Substance: ACITRETIN
     Dosage: UNK
  4. ENBREL [Suspect]
     Active Substance: ETANERCEPT
     Dosage: 25 MG, THREE TIMES PER WEEK
     Route: 065
     Dates: start: 2005
  5. EMCONCOR [Concomitant]
     Active Substance: BISOPROLOL FUMARATE
     Indication: CARDIAC DISORDER
     Dosage: UNK
  6. RIMACTAN [Concomitant]
     Active Substance: RIFAMPIN
     Indication: DYSPNOEA
     Dosage: UNK
  7. TRIATEC                            /00885601/ [Concomitant]
     Active Substance: RAMIPRIL
     Indication: CARDIAC DISORDER
     Dosage: UNK

REACTIONS (14)
  - Monoclonal immunoglobulin present [Unknown]
  - Immunoglobulins decreased [Unknown]
  - Weight increased [Unknown]
  - Pain [Unknown]
  - Dehydration [Unknown]
  - Prostate cancer [Unknown]
  - Tubulointerstitial nephritis [Unknown]
  - Prostatitis [Unknown]
  - Septic shock [Unknown]
  - Psoriasis [Unknown]
  - Urethral stenosis [Unknown]
  - Respiratory failure [Unknown]
  - Epididymitis [Unknown]
  - Prostatic abscess [Unknown]

NARRATIVE: CASE EVENT DATE: 2004
